FAERS Safety Report 5984783-5 (Version None)
Quarter: 2008Q4

REPORT INFORMATION
  Report Type: 
  Country: None (occurrence: None)
  Receive Date: 20081202
  Receipt Date: 20081117
  Transmission Date: 20090506
  Serious: Yes (Hospitalization)
  Sender: FDA-Public Use
  Company Number: 1-16887783

PATIENT
  Age: 84 Year
  Sex: Female

DRUGS (4)
  1. ECONAZOLE NITRATE [Suspect]
     Indication: DERMATITIS
     Dosage: 3 TIMES DAILY, CUTANEOUS
     Route: 003
  2. ACENOCOUMAROL [Suspect]
     Indication: ATRIAL FIBRILLATION
     Dosage: 4 MG DAILY, ORAL
     Route: 048
  3. ACENOCOUMAROL [Suspect]
     Indication: DEEP VEIN THROMBOSIS
     Dosage: 4 MG DAILY, ORAL
     Route: 048
  4. IRBESARTAN [Concomitant]

REACTIONS (9)
  - ACTIVATED PARTIAL THROMBOPLASTIN TIME PROLONGED [None]
  - BLOOD FIBRINOGEN INCREASED [None]
  - COAGULATION TIME PROLONGED [None]
  - DRUG INTERACTION [None]
  - HAEMOGLOBIN DECREASED [None]
  - INTERNATIONAL NORMALISED RATIO INCREASED [None]
  - RESPIRATORY FAILURE [None]
  - SPONTANEOUS HAEMATOMA [None]
  - UPPER AIRWAY OBSTRUCTION [None]
